FAERS Safety Report 6256851-4 (Version None)
Quarter: 2009Q3

REPORT INFORMATION
  Report Type: 
  Country: None (occurrence: None)
  Receive Date: 20090706
  Receipt Date: 20090625
  Transmission Date: 20100115
  Serious: Yes (Hospitalization, Other)
  Sender: FDA-Public Use
  Company Number: PHHY2009CA08248

PATIENT
  Sex: Male

DRUGS (2)
  1. ZOMETA [Suspect]
     Indication: LUNG CANCER METASTATIC
     Dosage: 4 MG, QMO
     Route: 042
     Dates: start: 20090114, end: 20090413
  2. RADIATION THERAPY [Concomitant]

REACTIONS (14)
  - ALANINE AMINOTRANSFERASE INCREASED [None]
  - BENIGN TUMOUR EXCISION [None]
  - BLOOD GLUCOSE INCREASED [None]
  - BLOOD LACTATE DEHYDROGENASE INCREASED [None]
  - BRAIN NEOPLASM [None]
  - CEREBRAL DECOMPRESSION [None]
  - CERVICAL CORD COMPRESSION [None]
  - CRANIOTOMY [None]
  - HAEMATOCRIT DECREASED [None]
  - HAEMOGLOBIN DECREASED [None]
  - LYMPHOCYTE COUNT DECREASED [None]
  - PARALYSIS [None]
  - RED CELL DISTRIBUTION WIDTH INCREASED [None]
  - SURGERY [None]
